FAERS Safety Report 10302012 (Version 1)
Quarter: 2014Q3

REPORT INFORMATION
  Report Type: Spontaneous
  Country: FR (occurrence: None)
  Receive Date: 20140709
  Receipt Date: 20140709
  Transmission Date: 20150326
  Serious: Yes (Death, Hospitalization, Other)
  Sender: FDA-Public Use
  Company Number: 2014VID00009

PATIENT
  Age: 63 Year
  Sex: Male

DRUGS (8)
  1. CORDARONE [Suspect]
     Active Substance: AMIODARONE HYDROCHLORIDE
     Route: 048
     Dates: start: 20120821, end: 20120829
  2. TIBERAL [Suspect]
     Active Substance: ORNIDAZOLE
     Route: 042
     Dates: start: 20120825, end: 20120829
  3. INTERFERON GAMMA-1B [Suspect]
     Active Substance: INTERFERON GAMMA-1B
     Dates: start: 20120825, end: 20120828
  4. TRIFLUCAN [Suspect]
     Active Substance: FLUCONAZOLE
     Route: 042
     Dates: start: 20120822, end: 20120826
  5. COLIMYCINE (COLISTIN SULFATE) [Suspect]
     Active Substance: COLISTIN SULFATE
     Route: 042
     Dates: start: 20120824, end: 20120830
  6. CORVASAL (MOLSIDOMINE) [Suspect]
     Active Substance: MOLSIDOMINE
     Route: 048
     Dates: start: 20120822, end: 20120828
  7. TYGACIL [Suspect]
     Active Substance: TIGECYCLINE
     Route: 042
     Dates: start: 20120824, end: 20120831
  8. CIPROFLOXACINE [Suspect]
     Active Substance: CIPROFLOXACIN

REACTIONS (5)
  - Haemoglobin decreased [None]
  - Peritonitis [None]
  - Stenotrophomonas infection [None]
  - Thrombocytopenia [None]
  - Multi-organ disorder [None]

NARRATIVE: CASE EVENT DATE: 20120628
